FAERS Safety Report 14273134 (Version 2)
Quarter: 2017Q4

REPORT INFORMATION
  Report Type: Spontaneous
  Country: US (occurrence: US)
  Receive Date: 20171211
  Receipt Date: 20171211
  Transmission Date: 20180321
  Serious: No
  Sender: FDA-Public Use
  Company Number: US-BIOGEN-2017BI00491535

PATIENT
  Age: 56 Year
  Sex: Female

DRUGS (2)
  1. AVONEX [Suspect]
     Active Substance: INTERFERON BETA-1A
     Indication: MULTIPLE SCLEROSIS
     Route: 065
     Dates: start: 19981203, end: 20151224
  2. AVONEX [Suspect]
     Active Substance: INTERFERON BETA-1A
     Route: 065
     Dates: start: 20170201

REACTIONS (3)
  - Memory impairment [Not Recovered/Not Resolved]
  - Fall [Recovered/Resolved]
  - Muscular weakness [Recovered/Resolved]

NARRATIVE: CASE EVENT DATE: 20171117
